FAERS Safety Report 6251419-8 (Version None)
Quarter: 2009Q2

REPORT INFORMATION
  Report Type: 
  Country: None (occurrence: None)
  Receive Date: 20090630
  Receipt Date: 20090618
  Transmission Date: 20091009
  Serious: Yes (Hospitalization, Other)
  Sender: FDA-Public Use
  Company Number: US-MERCK-0905USA03219

PATIENT
  Age: 68 Year
  Sex: Male

DRUGS (7)
  1. ISENTRESS [Suspect]
     Indication: HIV INFECTION
     Route: 048
     Dates: start: 20080926, end: 20090520
  2. PRAVACHOL [Suspect]
     Indication: HYPERLIPIDAEMIA
     Route: 048
  3. LISINOPRIL [Concomitant]
     Indication: HYPERTENSION
     Route: 048
  4. COMBIVIR [Concomitant]
     Indication: HIV INFECTION
     Route: 048
  5. VIREAD [Concomitant]
     Indication: HIV INFECTION
     Route: 048
  6. REYATAZ [Concomitant]
     Indication: HIV INFECTION
     Route: 065
  7. NORVIR [Concomitant]
     Route: 048

REACTIONS (3)
  - BLOOD CREATINE PHOSPHOKINASE INCREASED [None]
  - BLOOD CREATINE PHOSPHOKINASE MB INCREASED [None]
  - CHRONIC OBSTRUCTIVE PULMONARY DISEASE [None]
